FAERS Safety Report 5955928-8 (Version None)
Quarter: 2008Q4

REPORT INFORMATION
  Report Type: 
  Country: None (occurrence: None)
  Receive Date: 20081112
  Receipt Date: 20081029
  Transmission Date: 20090506
  Serious: Yes (Hospitalization)
  Sender: FDA-Public Use
  Company Number: 231241J07USA

PATIENT
  Age: 40 Year
  Sex: Female

DRUGS (6)
  1. REBIF [Suspect]
     Indication: MULTIPLE SCLEROSIS
     Dosage: 44 MCG, 3 IN 1 WEEKS, SUBCUTANEOUS
     Route: 058
     Dates: start: 20060608
  2. ULTRAM [Concomitant]
  3. LORCET (VICODIN) [Concomitant]
  4. DICYCLOMINE (DICYCLOVERINE/00068601/) [Concomitant]
  5. LIPITOR [Concomitant]
  6. RESTORIL [Concomitant]

REACTIONS (2)
  - COLITIS [None]
  - CONDITION AGGRAVATED [None]
